FAERS Safety Report 7760846-9 (Version None)
Quarter: 2011Q3

REPORT INFORMATION
  Report Type: 
  Country: None (occurrence: None)
  Receive Date: 20110919
  Receipt Date: 20110915
  Transmission Date: 20111222
  Serious: Yes (Other)
  Sender: FDA-Public Use
  Company Number: HU-PFIZER INC-2011119340

PATIENT
  Age: 62 Year
  Sex: Female
  Weight: 67 kg

DRUGS (4)
  1. ATORVASTATIN CALCIUM [Suspect]
     Dosage: 20 MG, 1X/DAY
     Route: 048
     Dates: start: 20110401, end: 20110501
  2. VITAMIN B COMPLEX CAP [Concomitant]
     Dosage: UNK
     Dates: end: 20110701
  3. CENTRUM [Concomitant]
     Dosage: UNK
     Dates: start: 20110701
  4. ATORVASTATIN CALCIUM [Suspect]
     Dosage: 10 MG, 1X/DAY
     Route: 048
     Dates: start: 20110501

REACTIONS (3)
  - VISION BLURRED [None]
  - HYPERHIDROSIS [None]
  - LACRIMATION INCREASED [None]
